FAERS Safety Report 5297964-3 (Version None)
Quarter: 2007Q2

REPORT INFORMATION
  Report Type: 
  Country: None (occurrence: None)
  Receive Date: 20070416
  Receipt Date: 20070403
  Transmission Date: 20071010
  Serious: Yes (Disabling, Other)
  Sender: FDA-Public Use
  Company Number: PHHO2007MX04425

PATIENT
  Age: 68 Year
  Sex: Female

DRUGS (5)
  1. ANAPSIQUE [Concomitant]
  2. LEVOTHYROXINE SODIUM [Concomitant]
  3. STALEVO 100 [Suspect]
     Indication: PARKINSON'S DISEASE
     Dosage: 2X 200/100/25MG A DAY
     Route: 048
     Dates: end: 20070204
  4. STALEVO 100 [Suspect]
     Dosage: 1X 200/100/25MG A DAY
     Route: 048
     Dates: start: 20070204
  5. STALEVO 100 [Suspect]
     Dosage: 200/100/2MG

REACTIONS (3)
  - MUSCLE RIGIDITY [None]
  - SKIN ATROPHY [None]
  - TREMOR [None]
